FAERS Safety Report 18019660 (Version 1)
Quarter: 2020Q3

REPORT INFORMATION
  Report Type: Spontaneous
  Country: GB (occurrence: GB)
  Receive Date: 20200714
  Receipt Date: 20200714
  Transmission Date: 20201103
  Serious: Yes (Hospitalization)
  Sender: FDA-Public Use
  Company Number: GB-ACCORD-190043

PATIENT
  Age: 86 Year
  Sex: Female
  Weight: 52.35 kg

DRUGS (13)
  1. COLECALCIFEROL [Concomitant]
     Active Substance: CHOLECALCIFEROL
  2. IRON [Concomitant]
     Active Substance: IRON
  3. ETANERCEPT [Concomitant]
     Active Substance: ETANERCEPT
  4. ATORVASTATIN [Concomitant]
     Active Substance: ATORVASTATIN
  5. LEVOTHYROXINE. [Concomitant]
     Active Substance: LEVOTHYROXINE
  6. METHOTREXATE/METHOTREXATE SODIUM [Concomitant]
     Active Substance: METHOTREXATE\METHOTREXATE SODIUM
  7. APIXABAN [Concomitant]
     Active Substance: APIXABAN
  8. FERRIC CARBOXYMALTOSE [Concomitant]
     Active Substance: FERRIC CARBOXYMALTOSE
  9. FOLIC ACID. [Concomitant]
     Active Substance: FOLIC ACID
  10. LANSOPRAZOLE. [Concomitant]
     Active Substance: LANSOPRAZOLE
  11. FUROSEMIDE. [Concomitant]
     Active Substance: FUROSEMIDE
  12. QUININE [Concomitant]
     Active Substance: QUININE
  13. CLOPIDOGREL [Suspect]
     Active Substance: CLOPIDOGREL BISULFATE
     Indication: AORTIC STENOSIS
     Dosage: OM
     Route: 048
     Dates: end: 20200623

REACTIONS (3)
  - Anaemia [Recovering/Resolving]
  - COVID-19 [Unknown]
  - Pulmonary fibrosis [Unknown]

NARRATIVE: CASE EVENT DATE: 20200518
